FAERS Safety Report 6965381-3 (Version None)
Quarter: 2010Q3

REPORT INFORMATION
  Report Type: 
  Country: None (occurrence: None)
  Receive Date: 20100903
  Receipt Date: 20100827
  Transmission Date: 20110219
  Serious: Yes (Death, Hospitalization)
  Sender: FDA-Public Use
  Company Number: A0869080A

PATIENT
  Age: 53 Year
  Sex: Male
  Weight: 63.6 kg

DRUGS (10)
  1. SELZENTRY [Suspect]
     Indication: HIV INFECTION
     Route: 048
  2. ISENTRESS [Concomitant]
     Dosage: 400MG TWICE PER DAY
  3. TRUVADA [Concomitant]
  4. MEPRON [Concomitant]
     Dosage: 750MG PER DAY
  5. PHENERGAN [Concomitant]
     Dosage: 25MG AS REQUIRED
  6. IMODIUM [Concomitant]
     Dosage: 2MG AS REQUIRED
  7. BENADRYL [Concomitant]
  8. DIFLUCAN [Concomitant]
  9. TRIAMCINOLONE [Concomitant]
  10. ACYCLOVIR SODIUM [Concomitant]
     Dosage: 400MG TWICE PER DAY

REACTIONS (26)
  - ABDOMINAL PAIN [None]
  - ABDOMINAL PAIN UPPER [None]
  - ACTIVATED PARTIAL THROMBOPLASTIN TIME PROLONGED [None]
  - ALANINE AMINOTRANSFERASE INCREASED [None]
  - ASPARTATE AMINOTRANSFERASE INCREASED [None]
  - BILIRUBIN CONJUGATED INCREASED [None]
  - BLOOD ALBUMIN DECREASED [None]
  - BLOOD AMYLASE INCREASED [None]
  - BLOOD BILIRUBIN INCREASED [None]
  - CHOLANGITIS [None]
  - CYTOMEGALOVIRUS INFECTION [None]
  - DECREASED APPETITE [None]
  - DIARRHOEA [None]
  - EOSINOPHIL COUNT INCREASED [None]
  - HEPATIC FAILURE [None]
  - HYPERSENSITIVITY [None]
  - JAUNDICE [None]
  - LEUKOCYTOSIS [None]
  - LIPASE INCREASED [None]
  - LIVER FUNCTION TEST ABNORMAL [None]
  - NAUSEA [None]
  - PROTHROMBIN TIME PROLONGED [None]
  - PYREXIA [None]
  - RASH [None]
  - RASH GENERALISED [None]
  - VOMITING [None]
